FAERS Safety Report 9562820 (Version 5)
Quarter: 2014Q1

REPORT INFORMATION
  Report Type: Report from Study
  Country: PR (occurrence: PR)
  Receive Date: 20130927
  Receipt Date: 20140122
  Transmission Date: 20141002
  Serious: Yes (Life-Threatening, Hospitalization)
  Sender: FDA-Public Use
  Company Number: PR-ABBVIE-13P-131-1151073-00

PATIENT
  Sex: Female
  Weight: 63.56 kg

DRUGS (5)
  1. HUMIRA [Suspect]
     Indication: RHEUMATOID ARTHRITIS
     Route: 058
     Dates: start: 201306, end: 20130825
  2. PEPCID [Concomitant]
     Indication: HYPERCHLORHYDRIA
     Route: 048
  3. LASIX [Concomitant]
     Indication: DIURETIC THERAPY
     Route: 048
  4. PREDNISONE [Concomitant]
     Indication: RHEUMATOID ARTHRITIS
     Route: 048
  5. ASPIRIN [Concomitant]
     Indication: PRODUCT USED FOR UNKNOWN INDICATION
     Route: 048

REACTIONS (5)
  - Transfusion related complication [Unknown]
  - Respiratory arrest [Recovered/Resolved]
  - Cellulitis [Unknown]
  - Hypertension [Recovered/Resolved]
  - Diabetes mellitus [Unknown]
